FAERS Safety Report 8537301 (Version 8)
Quarter: 2013Q1

REPORT INFORMATION
  Report Type: Report from Study
  Country: GB (occurrence: GB)
  Receive Date: 20120430
  Receipt Date: 20130221
  Transmission Date: 20140127
  Serious: Yes (Hospitalization)
  Sender: FDA-Public Use
  Company Number: GB-ROCHE-1063550

PATIENT
  Age: 43 Year
  Sex: Male
  Weight: 100 kg

DRUGS (4)
  1. VEMURAFENIB [Suspect]
     Indication: MALIGNANT MELANOMA
     Dosage: DATE OF LAST DOSE PRIOR TO SAE: 11/FEB/2012
     Route: 048
     Dates: start: 20120202
  2. VEMURAFENIB [Suspect]
     Dosage: DATE OF LAST DOSE PRIRO TO SAE: 24/APR/2012
     Route: 048
     Dates: start: 20120217
  3. DEXAMETHASONE [Concomitant]
     Route: 065
     Dates: start: 20120416
  4. SEVREDOL [Concomitant]
     Route: 065
     Dates: start: 20120413, end: 20120424

REACTIONS (1)
  - Abdominal pain [Recovered/Resolved]
